APPROVED DRUG PRODUCT: DICLOFENAC SODIUM
Active Ingredient: DICLOFENAC SODIUM
Strength: 100MG
Dosage Form/Route: TABLET, EXTENDED RELEASE;ORAL
Application: A075910 | Product #001
Applicant: ACTAVIS ELIZABETH LLC
Approved: Jan 7, 2002 | RLD: No | RS: No | Type: DISCN